FAERS Safety Report 8816381 (Version 1)
Quarter: 2012Q4

REPORT INFORMATION
  Report Type: Spontaneous
  Country: US (occurrence: None)
  Receive Date: 20120928
  Receipt Date: 20120928
  Transmission Date: 20130627
  Serious: Yes (Hospitalization)
  Sender: FDA-Public Use
  Company Number: None

PATIENT
  Age: 87 Year
  Sex: Female
  Weight: 78.9 kg

DRUGS (8)
  1. COUMADIN [Suspect]
     Indication: ATRIAL FIBRILLATION
     Dosage: Mon + Thurs
     Route: 048
  2. COUMADIN [Suspect]
     Indication: ATRIAL FIBRILLATION
     Dosage: Sat, TWF, Sun
     Route: 048
  3. AMLODIPINE [Concomitant]
  4. LISINOPRIL [Concomitant]
  5. TRIAMTERENE/HCTZ [Concomitant]
  6. VIT D [Concomitant]
  7. TOPROL XL [Concomitant]
  8. CIPRO [Concomitant]

REACTIONS (1)
  - Haematoma [None]
